FAERS Safety Report 6054739-5 (Version None)
Quarter: 2009Q1

REPORT INFORMATION
  Report Type: 
  Country: None (occurrence: None)
  Receive Date: 20090128
  Receipt Date: 20090120
  Transmission Date: 20090719
  Serious: Yes (Hospitalization)
  Sender: FDA-Public Use
  Company Number: CA-WYE-G02975609

PATIENT
  Sex: Male
  Weight: 83.7 kg

DRUGS (15)
  1. RAPAMUNE [Suspect]
     Indication: PROPHYLAXIS AGAINST TRANSPLANT REJECTION
     Route: 048
     Dates: start: 20081117
  2. PREDNISONE [Suspect]
     Indication: PROPHYLAXIS AGAINST TRANSPLANT REJECTION
     Route: 048
     Dates: start: 20080718
  3. ATORVASTATIN CALCIUM [Concomitant]
     Indication: DYSLIPIDAEMIA
     Route: 048
     Dates: start: 20071117
  4. PANTOPRAZOLE SODIUM [Concomitant]
     Indication: PROPHYLAXIS
     Route: 048
     Dates: start: 20070101
  5. WARFARIN SODIUM [Concomitant]
     Indication: PROPHYLAXIS
     Route: 048
     Dates: start: 20080725
  6. OS-CAL [Concomitant]
     Indication: SUPPLEMENTATION THERAPY
     Route: 048
     Dates: start: 20080606
  7. ONE-ALPHA [Concomitant]
     Indication: SUPPLEMENTATION THERAPY
     Dosage: 0.25 UG/L
     Route: 048
     Dates: start: 20080606
  8. SEPTRA DS [Concomitant]
     Indication: PROPHYLAXIS
     Route: 048
     Dates: start: 20080524
  9. VALCYTE [Concomitant]
     Indication: PROPHYLAXIS
     Route: 048
     Dates: start: 20080528
  10. MONOCOR [Concomitant]
     Indication: HYPERTENSION
     Route: 048
     Dates: start: 20071117
  11. HUMALOG [Concomitant]
     Indication: DIABETES MELLITUS
     Dosage: 62 UNIT EVERY
     Route: 058
     Dates: start: 20080801
  12. LANTUS [Concomitant]
     Indication: DIABETES MELLITUS
     Dosage: 32 UNIT EVERY
     Route: 058
     Dates: start: 20080801
  13. ADVAIR DISKUS 100/50 [Concomitant]
     Indication: ASTHMA
     Dosage: 4 INHALANT EVERY
     Route: 055
     Dates: start: 20071117
  14. VENTOLIN [Concomitant]
     Indication: ASTHMA
     Dosage: 1 INHALANT EVERY
     Route: 055
     Dates: start: 20071117
  15. CELLCEPT [Suspect]
     Indication: PROPHYLAXIS AGAINST TRANSPLANT REJECTION
     Route: 048
     Dates: start: 20081117, end: 20090120

REACTIONS (3)
  - COMPLICATIONS OF TRANSPLANTED KIDNEY [None]
  - LEUKOPENIA [None]
  - NEUTROPHILIA [None]
